FAERS Safety Report 21991713 (Version 1)
Quarter: 2023Q1

REPORT INFORMATION
  Report Type: Other
  Country: CN (occurrence: None)
  Receive Date: 20230214
  Receipt Date: 20230214
  Transmission Date: 20230418
  Serious: Yes (Other)
  Sender: FDA-Public Use
  Company Number: CN-Invatech-000286

PATIENT
  Age: 14 Year
  Sex: Female

DRUGS (9)
  1. CALCITRIOL [Suspect]
     Active Substance: CALCITRIOL
     Indication: Hypoparathyroidism
     Dosage: 0.5 MICROGRAM/DAY
     Route: 048
  2. CALCIUM [Suspect]
     Active Substance: CALCIUM
     Indication: Hypoparathyroidism
     Dosage: 1.5 G/D
     Route: 048
  3. COENZYME Q10 [Suspect]
     Active Substance: DIETARY SUPPLEMENT\UBIDECARENONE
     Indication: Antioxidant therapy
     Dosage: 10 MG/KG/D
  4. VITAMIN B2 [Suspect]
     Active Substance: RIBOFLAVIN
     Indication: Antioxidant therapy
     Dosage: 100 MG/D
  5. VITAMIN E [Suspect]
     Active Substance: .ALPHA.-TOCOPHEROL
     Indication: Antioxidant therapy
     Dosage: 10 MG/D
  6. LEVOCARNITINE [Suspect]
     Active Substance: LEVOCARNITINE
     Indication: Product used for unknown indication
     Dosage: 2 G/D
  7. VITAMIN B6 [Concomitant]
     Active Substance: PYRIDOXINE HYDROCHLORIDE
     Indication: Sideroblastic anaemia
     Dosage: 90 MG/D
  8. DEFERIPRONE [Concomitant]
     Active Substance: DEFERIPRONE
     Indication: Iron overload
     Dosage: 1500 MG/D
     Route: 048
  9. Desirox-500 [Concomitant]
     Indication: Iron overload

REACTIONS (6)
  - Multiple fractures [Unknown]
  - Intermittent claudication [Unknown]
  - Hypokinesia [Unknown]
  - Fall [Unknown]
  - Face injury [Unknown]
  - Joint effusion [Unknown]
